FAERS Safety Report 4638355-5 (Version None)
Quarter: 2005Q2

REPORT INFORMATION
  Report Type: 
  Country: None (occurrence: None)
  Receive Date: 20050415
  Receipt Date: 20050405
  Transmission Date: 20051028
  Serious: Yes (Other)
  Sender: FDA-Public Use
  Company Number: A-CH2005-08652

PATIENT
  Age: 55 Year
  Sex: Female

DRUGS (9)
  1. TRACLEER [Suspect]
     Indication: PULMONARY HYPERTENSION
     Dosage: SEE IMAGE
     Route: 048
     Dates: start: 20041115, end: 20050201
  2. TRACLEER [Suspect]
     Indication: PULMONARY HYPERTENSION
     Dosage: SEE IMAGE
     Route: 048
     Dates: start: 20041019, end: 20051114
  3. TRACLEER [Suspect]
     Indication: PULMONARY HYPERTENSION
     Dosage: SEE IMAGE
     Route: 048
     Dates: start: 20050201
  4. FERROUS SULFATE TAB [Concomitant]
  5. EUPANTOL (PANTOPRAZOLE) [Concomitant]
  6. FUROSEMIDE [Concomitant]
  7. ALDACTONE [Concomitant]
  8. MIXTARD (INSULIN INJECTION, ISOPHANE, INSULIN) [Concomitant]
  9. OXYGEN (OXYGEN) [Concomitant]

REACTIONS (8)
  - CHOLELITHIASIS [None]
  - GASTROINTESTINAL NEOPLASM [None]
  - HAEMOGLOBIN DECREASED [None]
  - HEPATOMEGALY [None]
  - IRON DEFICIENCY ANAEMIA [None]
  - SPLENOMEGALY [None]
  - THROMBOCYTOPENIA [None]
  - VARICES OESOPHAGEAL [None]
